FAERS Safety Report 8092064 (Version 16)
Quarter: 2015Q1

REPORT INFORMATION
  Report Type: Report from Study
  Country: CA (occurrence: CA)
  Receive Date: 20110816
  Receipt Date: 20150304
  Transmission Date: 20150721
  Serious: Yes (Other)
  Sender: FDA-Public Use
  Company Number: PHHY2011CA70795

PATIENT
  Age: 54 Year
  Sex: Female

DRUGS (6)
  1. SANDOSTATIN LAR DEPOT [Suspect]
     Active Substance: OCTREOTIDE ACETATE
     Dosage: 20 MG, EVERY 6 WEEKS
     Route: 030
  2. CYCLOBENZAPRINE [Concomitant]
     Active Substance: CYCLOBENZAPRINE
     Indication: PRODUCT USED FOR UNKNOWN INDICATION
     Dosage: 1 DF, TID AS PER NEEDED
     Route: 065
  3. TYLENOL [Concomitant]
     Active Substance: ACETAMINOPHEN
     Indication: PRODUCT USED FOR UNKNOWN INDICATION
     Dosage: 1 TO 2 DF, TID, IF NEEDED
     Route: 065
  4. SANDOSTATIN LAR DEPOT [Suspect]
     Active Substance: OCTREOTIDE ACETATE
     Indication: ACROMEGALY
     Dosage: 20 MG, EVERY 4 WEEKS
     Route: 030
     Dates: start: 19991001
  5. DETROL LA [Concomitant]
     Active Substance: TOLTERODINE TARTRATE
     Indication: PRODUCT USED FOR UNKNOWN INDICATION
     Route: 065
  6. LYRICA [Concomitant]
     Active Substance: PREGABALIN
     Indication: PRODUCT USED FOR UNKNOWN INDICATION
     Dosage: 1 DF, TID FOR THREE WEEKS
     Route: 065

REACTIONS (36)
  - Gait disturbance [Unknown]
  - Nausea [Unknown]
  - Asthenia [Unknown]
  - Rectal haemorrhage [Unknown]
  - Diverticulitis [Unknown]
  - Abdominal discomfort [Unknown]
  - Joint stiffness [Not Recovered/Not Resolved]
  - Memory impairment [Unknown]
  - Haematemesis [Unknown]
  - Sciatica [Unknown]
  - Hypotension [Unknown]
  - Blood pressure diastolic increased [Unknown]
  - Diarrhoea [Unknown]
  - Cytomegalovirus gastrointestinal infection [Unknown]
  - Urinary incontinence [Unknown]
  - Frustration [Unknown]
  - Paraesthesia [Not Recovered/Not Resolved]
  - Fatigue [Unknown]
  - White blood cell count increased [Unknown]
  - Musculoskeletal discomfort [Unknown]
  - Discomfort [Unknown]
  - Hyperhidrosis [Unknown]
  - Malaise [Unknown]
  - Vomiting [Unknown]
  - Heart rate increased [Unknown]
  - Musculoskeletal stiffness [Unknown]
  - Pain [Not Recovered/Not Resolved]
  - Flushing [Unknown]
  - Injection site pain [Unknown]
  - Abdominal pain [Unknown]
  - Fall [Unknown]
  - Arthralgia [Recovering/Resolving]
  - Pyrexia [Unknown]
  - Chills [Unknown]
  - Night sweats [Unknown]
  - Constipation [Unknown]

NARRATIVE: CASE EVENT DATE: 2005
